FAERS Safety Report 7231584-6 (Version None)
Quarter: 2011Q1

REPORT INFORMATION
  Report Type: 
  Country: None (occurrence: None)
  Receive Date: 20110107
  Receipt Date: 20101217
  Transmission Date: 20110831
  Serious: Yes (Hospitalization, Other)
  Sender: FDA-Public Use
  Company Number: WAES 1008USA00507

PATIENT
  Age: 4 Year
  Sex: Female

DRUGS (8)
  1. BACTRIM [Concomitant]
  2. FOLIC ACID [Concomitant]
  3. ABACAVIR SULFATE [Concomitant]
  4. DIDANOSINE [Concomitant]
  5. VITAMINS (UNSPECIFIED) [Concomitant]
  6. ISENTRESS [Suspect]
     Indication: HIV INFECTION
     Dosage: 100 MG/BID/PO
     Route: 048
     Dates: start: 20100714
  7. EFAVIRENZ [Suspect]
     Dosage: 250 MG/HS/PO; 200 MG/DAILY/ PO
     Route: 048
     Dates: start: 20100714
  8. LAMIVUDINE [Concomitant]

REACTIONS (8)
  - SPLENOMEGALY [None]
  - ALANINE AMINOTRANSFERASE INCREASED [None]
  - BLOOD LACTIC ACID INCREASED [None]
  - RASH ERYTHEMATOUS [None]
  - LYMPHADENOPATHY [None]
  - GAMMA-GLUTAMYLTRANSFERASE INCREASED [None]
  - ASPARTATE AMINOTRANSFERASE INCREASED [None]
  - RASH PRURITIC [None]
